FAERS Safety Report 18630938 (Version 3)
Quarter: 2021Q1

REPORT INFORMATION
  Report Type: Report from Study
  Country: None (occurrence: US)
  Receive Date: 20201218
  Receipt Date: 20210116
  Transmission Date: 20210419
  Serious: No
  Sender: FDA-Public Use
  Company Number: US-ABBVIE-20K-163-3694226-00

PATIENT
  Sex: Male

DRUGS (1)
  1. HUMIRA [Suspect]
     Active Substance: ADALIMUMAB
     Indication: RHEUMATOID ARTHRITIS
     Route: 058
     Dates: start: 202011

REACTIONS (5)
  - Nausea [Unknown]
  - Illness [Not Recovered/Not Resolved]
  - Rash papular [Unknown]
  - Headache [Unknown]
  - Madarosis [Unknown]

NARRATIVE: CASE EVENT DATE: 2020
